FAERS Safety Report 5211641-6 (Version None)
Quarter: 2007Q1

REPORT INFORMATION
  Report Type: 
  Country: None (occurrence: None)
  Receive Date: 20070118
  Receipt Date: 20070109
  Transmission Date: 20070707
  Serious: Yes (Other)
  Sender: FDA-Public Use
  Company Number: PHBS2006JP20070

PATIENT
  Age: 49 Year
  Sex: Female
  Weight: 46 kg

DRUGS (1)
  1. AREDIA [Suspect]
     Indication: SKELETON DYSPLASIA
     Dosage: 45 MG, UNK
     Route: 042

REACTIONS (11)
  - ABSCESS DRAINAGE [None]
  - COMPUTERISED TOMOGRAM ABNORMAL [None]
  - ENDODONTIC PROCEDURE [None]
  - FISTULA [None]
  - IMPAIRED HEALING [None]
  - INFLAMMATION [None]
  - ORAL DISCOMFORT [None]
  - OSTEONECROSIS [None]
  - PURULENT DISCHARGE [None]
  - TOOTH EXTRACTION [None]
  - WOUND DEBRIDEMENT [None]
